FAERS Safety Report 9855856 (Version 3)
Quarter: 2014Q1

REPORT INFORMATION
  Report Type: Spontaneous
  Country: US (occurrence: US)
  Receive Date: 20140130
  Receipt Date: 20140306
  Transmission Date: 20141002
  Serious: No
  Sender: FDA-Public Use
  Company Number: US-PFIZER INC-2014024610

PATIENT
  Age: 78 Year
  Sex: Female
  Weight: 63.49 kg

DRUGS (5)
  1. ZITHROMAX [Suspect]
     Indication: MYCOBACTERIUM AVIUM COMPLEX INFECTION
     Dosage: UNK
     Dates: end: 20120501
  2. PENTASA [Concomitant]
     Indication: CROHN^S DISEASE
     Dosage: 500 MG, 2X/DAY
     Dates: start: 2000
  3. CELEBREX [Concomitant]
     Indication: ARTHRITIS
     Dosage: UNK
  4. RIFAMPIN [Concomitant]
     Dosage: UNK
     Dates: end: 20120501
  5. ETHAMBUTOL [Concomitant]
     Dosage: UNK
     Dates: end: 20120501

REACTIONS (1)
  - Drug effect incomplete [Unknown]
